FAERS Safety Report 20158627 (Version 1)
Quarter: 2021Q4

REPORT INFORMATION
  Report Type: Spontaneous
  Country: CA (occurrence: CA)
  Receive Date: 20211207
  Receipt Date: 20211207
  Transmission Date: 20220303
  Serious: Yes (Hospitalization, Other)
  Sender: FDA-Public Use
  Company Number: CA-AUROBINDO-AUR-APL-2021-050119

PATIENT
  Age: 62 Year
  Sex: Female

DRUGS (1)
  1. TRANDOLAPRIL [Suspect]
     Active Substance: TRANDOLAPRIL
     Indication: Product used for unknown indication
     Dosage: UNK
     Route: 065

REACTIONS (3)
  - Angioedema [Unknown]
  - Therapy change [Unknown]
  - Obstructive airways disorder [Unknown]
